FAERS Safety Report 6578699-3 (Version None)
Quarter: 2010Q1

REPORT INFORMATION
  Report Type: 
  Country: None (occurrence: None)
  Receive Date: 20100202
  Receipt Date: 20100118
  Transmission Date: 20100710
  Serious: Yes (Hospitalization)
  Sender: FDA-Public Use
  Company Number: 2010000253

PATIENT
  Age: 78 Year
  Sex: Male

DRUGS (2)
  1. ERLOTINIB HYDROCHLORIDE [Suspect]
     Indication: NON-SMALL CELL LUNG CANCER
     Dosage: (100 MG, QD), ORAL
     Route: 048
     Dates: start: 20091228
  2. GEMCITABINE [Suspect]
     Indication: NON-SMALL CELL LUNG CANCER
     Dosage: (2000 MG, QW), INTRAVENOUS
     Route: 042
     Dates: start: 20091228

REACTIONS (1)
  - INTESTINAL OBSTRUCTION [None]
